APPROVED DRUG PRODUCT: LOTENSIN
Active Ingredient: BENAZEPRIL HYDROCHLORIDE
Strength: 5MG **Federal Register determination that product was not discontinued or withdrawn for safety or effectiveness reasons**
Dosage Form/Route: TABLET;ORAL
Application: N019851 | Product #001
Applicant: VALIDUS PHARMACEUTICALS LLC
Approved: Jun 25, 1991 | RLD: Yes | RS: No | Type: DISCN